FAERS Safety Report 14479538 (Version 1)
Quarter: 2018Q1

REPORT INFORMATION
  Report Type: Spontaneous
  Country: US (occurrence: US)
  Receive Date: 20180202
  Receipt Date: 20180202
  Transmission Date: 20180509
  Serious: No
  Sender: FDA-Public Use
  Company Number: US-ELI_LILLY_AND_COMPANY-US201801013250

PATIENT

DRUGS (1)
  1. QUINIDINE GLUCONATE. [Suspect]
     Active Substance: QUINIDINE GLUCONATE
     Indication: MALARIA
     Dosage: UNK, UNKNOWN
     Route: 065

REACTIONS (1)
  - Product storage error [Unknown]
